FAERS Safety Report 9921766 (Version 1)
Quarter: 2014Q1

REPORT INFORMATION
  Report Type: Spontaneous
  Country: CL (occurrence: CL)
  Receive Date: 20140225
  Receipt Date: 20140225
  Transmission Date: 20141002
  Serious: Yes (Other)
  Sender: FDA-Public Use
  Company Number: CL-PFIZER INC-2014048871

PATIENT
  Age: 78 Year
  Sex: Female

DRUGS (6)
  1. XALATAN [Suspect]
     Indication: GLAUCOMA
     Dosage: 1 DROP, 1X/DAY
     Route: 047
     Dates: start: 20131114
  2. ARTIFICIAL TEARS [Concomitant]
     Dosage: UNK
     Dates: start: 2013
  3. VALSARTAN [Concomitant]
     Dosage: 160 MG, 2X/DAY
  4. ASPIRINE [Concomitant]
  5. LEVOTHYROXINE [Concomitant]
     Dosage: UNK
     Dates: start: 1999
  6. ANAPROLINA [Concomitant]

REACTIONS (4)
  - Intraocular pressure increased [Not Recovered/Not Resolved]
  - Cataract [Not Recovered/Not Resolved]
  - Dry eye [Not Recovered/Not Resolved]
  - Ocular hyperaemia [Not Recovered/Not Resolved]
